FAERS Safety Report 25451037 (Version 1)
Quarter: 2025Q2

REPORT INFORMATION
  Report Type: Spontaneous
  Country: GB (occurrence: GB)
  Receive Date: 20250618
  Receipt Date: 20250618
  Transmission Date: 20250717
  Serious: Yes (Other)
  Sender: TORRENT PHARMA INC.
  Company Number: None

PATIENT
  Age: 74 Year
  Sex: Male

DRUGS (1)
  1. APIXABAN [Suspect]
     Active Substance: APIXABAN
     Indication: Atrial fibrillation
     Dosage: 5 MG TWICE A DAY
     Route: 065
     Dates: start: 20250603

REACTIONS (2)
  - Oedema peripheral [Not Recovered/Not Resolved]
  - Muscle tightness [Unknown]

NARRATIVE: CASE EVENT DATE: 20250606
